FAERS Safety Report 9896408 (Version 1)
Quarter: 2014Q1

REPORT INFORMATION
  Report Type: Spontaneous
  Country: US (occurrence: US)
  Receive Date: 20140213
  Receipt Date: 20140213
  Transmission Date: 20141002
  Serious: No
  Sender: FDA-Public Use
  Company Number: US-BRISTOL-MYERS SQUIBB COMPANY-19836873

PATIENT
  Age: 64 Year
  Sex: Female
  Weight: 68.03 kg

DRUGS (2)
  1. ORENCIA FOR INJ [Suspect]
     Dosage: LAST INFUSION:30OCT2013
     Route: 042
  2. TOPIRAMATE [Concomitant]
     Dosage: ONE IN MORNING AND ONE AT NIGHT.

REACTIONS (2)
  - Migraine [Unknown]
  - Drug ineffective [Unknown]
